FAERS Safety Report 5825619-2 (Version None)
Quarter: 2008Q3

REPORT INFORMATION
  Report Type: 
  Country: None (occurrence: None)
  Receive Date: 20080729
  Receipt Date: 20080725
  Transmission Date: 20090109
  Serious: Yes (Hospitalization)
  Sender: FDA-Public Use
  Company Number: B0496454A

PATIENT
  Age: 75 Year
  Sex: Male
  Weight: 57 kg

DRUGS (13)
  1. REQUIP [Suspect]
     Indication: PARKINSON'S DISEASE
     Route: 048
     Dates: start: 20070529
  2. DORAL [Concomitant]
     Route: 048
     Dates: end: 20070628
  3. ALMARL [Concomitant]
     Route: 048
  4. PAXIL [Concomitant]
     Indication: DEPRESSION
     Route: 048
  5. SYMMETREL [Concomitant]
     Indication: PARKINSON'S DISEASE
     Route: 048
  6. ARTANE [Concomitant]
     Indication: PARKINSON'S DISEASE
     Route: 048
  7. LENDORMIN [Concomitant]
     Route: 048
     Dates: start: 20070629
  8. LEVOFLOXACIN [Concomitant]
     Route: 048
     Dates: end: 20070909
  9. AMOXICILLIN TRIHYDRATE [Concomitant]
     Route: 048
     Dates: end: 20070927
  10. MUCOSTA [Concomitant]
     Route: 048
     Dates: end: 20070927
  11. SODIUM BICARBONATE [Concomitant]
     Route: 048
     Dates: start: 20070821, end: 20070918
  12. DIASTASE [Concomitant]
     Route: 048
     Dates: start: 20070821, end: 20070918
  13. MAGNESIUM OXIDE [Concomitant]
     Route: 048
     Dates: start: 20070821, end: 20070918

REACTIONS (1)
  - INTESTINAL OBSTRUCTION [None]
